FAERS Safety Report 17857285 (Version 1)
Quarter: 2020Q2

REPORT INFORMATION
  Report Type: Spontaneous
  Country: US (occurrence: US)
  Receive Date: 20200603
  Receipt Date: 20200603
  Transmission Date: 20200714
  Serious: No
  Sender: FDA-Public Use
  Company Number: US-ASTRAZENECA-2020SE66791

PATIENT
  Sex: Female
  Weight: 51.3 kg

DRUGS (9)
  1. FASENRA [Suspect]
     Active Substance: BENRALIZUMAB
     Indication: EOSINOPHIL COUNT
     Dosage: EVERY 8 WEEKS
     Route: 058
  2. FASENRA [Suspect]
     Active Substance: BENRALIZUMAB
     Indication: ASTHMA
     Dosage: EVERY 8 WEEKS
     Route: 058
  3. ALLERGY SHOT [Concomitant]
     Active Substance: UNSPECIFIED INGREDIENT
     Route: 065
  4. FASENRA [Suspect]
     Active Substance: BENRALIZUMAB
     Indication: EOSINOPHIL COUNT
     Dosage: EVERY MONTH
     Route: 058
     Dates: start: 20190722
  5. FASENRA [Suspect]
     Active Substance: BENRALIZUMAB
     Indication: ASTHMA
     Dosage: EVERY MONTH
     Route: 058
     Dates: start: 20190722
  6. BUDESONIDE. [Suspect]
     Active Substance: BUDESONIDE
     Route: 055
  7. 7 PERCENT HYPERSOL SALINE SOLUTION [Concomitant]
     Dosage: UNKNOWN
     Route: 065
  8. ZYRTEC [Concomitant]
     Active Substance: CETIRIZINE HYDROCHLORIDE
     Route: 065
  9. ALBUTEROL NEBULIZER [Concomitant]
     Active Substance: ALBUTEROL
     Dosage: AS REQUIRED
     Route: 065

REACTIONS (6)
  - Hypersensitivity [Not Recovered/Not Resolved]
  - Memory impairment [Unknown]
  - Wheezing [Not Recovered/Not Resolved]
  - Sleep disorder [Not Recovered/Not Resolved]
  - Cough [Not Recovered/Not Resolved]
  - Pulmonary congestion [Not Recovered/Not Resolved]
